FAERS Safety Report 18797223 (Version 1)
Quarter: 2021Q1

REPORT INFORMATION
  Report Type: Report from Study
  Country: None (occurrence: US)
  Receive Date: 20210127
  Receipt Date: 20210127
  Transmission Date: 20210419
  Serious: Yes (Hospitalization)
  Sender: FDA-Public Use
  Company Number: US-ABBVIE-21K-163-3747022-00

PATIENT
  Age: 52 Year
  Sex: Male

DRUGS (1)
  1. SKYRIZI [Suspect]
     Active Substance: RISANKIZUMAB-RZAA
     Indication: PSORIATIC ARTHROPATHY
     Dosage: AT TIME 0, 1 MONTH LATER THEN EVERY 3 MONTHS
     Route: 058

REACTIONS (2)
  - Cholecystectomy [Unknown]
  - Back pain [Unknown]

NARRATIVE: CASE EVENT DATE: 20210125
